FAERS Safety Report 12737003 (Version 2)
Quarter: 2016Q3

REPORT INFORMATION
  Report Type: Report from Study
  Country: CA (occurrence: CA)
  Receive Date: 20160913
  Receipt Date: 20160920
  Transmission Date: 20161109
  Serious: Yes (Hospitalization, Other)
  Sender: FDA-Public Use
  Company Number: CA-TOLMAR, INC.-2016CA008593

PATIENT

DRUGS (1)
  1. ELIGARD [Suspect]
     Active Substance: LEUPROLIDE ACETATE
     Indication: PROSTATE CANCER
     Dosage: 45 MG, UNK
     Route: 065
     Dates: start: 20101026

REACTIONS (6)
  - Faeces discoloured [Unknown]
  - Asthenia [Unknown]
  - Gastrointestinal haemorrhage [Unknown]
  - Stent placement [Unknown]
  - Precancerous mucosal lesion [Unknown]
  - Gastrointestinal ulcer [Unknown]

NARRATIVE: CASE EVENT DATE: 20160913
